FAERS Safety Report 8482319-0 (Version None)
Quarter: 2012Q3

REPORT INFORMATION
  Report Type: 
  Country: None (occurrence: None)
  Receive Date: 20120702
  Receipt Date: 20120622
  Transmission Date: 20120928
  Serious: Yes (Other)
  Sender: FDA-Public Use
  Company Number: DE-ASTRAZENECA-2012SE41797

PATIENT
  Sex: Male

DRUGS (6)
  1. ENALAPRIL MALEATE [Interacting]
     Indication: HYPERTENSION
     Route: 065
  2. HYDROCHLOROTHIAZIDE [Interacting]
     Indication: HYPERTENSION
     Route: 065
  3. NEXIUM [Suspect]
     Indication: GASTROOESOPHAGEAL REFLUX DISEASE
     Route: 048
  4. ANTIHYPERTENSIVE MEDICATION [Interacting]
     Route: 065
  5. LOSARTAN POTASSIUM [Interacting]
     Indication: HYPERTENSION
     Route: 065
  6. ADALAT [Interacting]
     Indication: HYPERTENSION
     Route: 065

REACTIONS (2)
  - INHIBITORY DRUG INTERACTION [None]
  - HYPERTENSIVE CRISIS [None]
